FAERS Safety Report 6785991-6 (Version None)
Quarter: 2010Q2

REPORT INFORMATION
  Report Type: 
  Country: None (occurrence: None)
  Receive Date: 20100623
  Receipt Date: 20100615
  Transmission Date: 20101027
  Serious: Yes (Other)
  Sender: FDA-Public Use
  Company Number: JP-ASTRAZENECA-2010SE28088

PATIENT
  Age: 75 Year
  Sex: Male

DRUGS (1)
  1. OMEPRAL [Suspect]
     Dosage: DOSE UNKNOWN
     Route: 048

REACTIONS (1)
  - RENAL FAILURE [None]
